FAERS Safety Report 19594814 (Version 1)
Quarter: 2021Q3

REPORT INFORMATION
  Report Type: Spontaneous
  Country: US (occurrence: US)
  Receive Date: 20210722
  Receipt Date: 20210722
  Transmission Date: 20211014
  Serious: No
  Sender: FDA-Public Use
  Company Number: US-SA-2021SA240045

PATIENT
  Age: 58 Year
  Sex: Female

DRUGS (1)
  1. DUPIXENT [Suspect]
     Active Substance: DUPILUMAB
     Dosage: 200 MG, QD
     Route: 048
     Dates: start: 20210202

REACTIONS (2)
  - Nasal ulcer [Unknown]
  - Product use issue [Unknown]

NARRATIVE: CASE EVENT DATE: 20210202
